FAERS Safety Report 14824045 (Version 1)
Quarter: 2018Q2

REPORT INFORMATION
  Report Type: Report from Study
  Country: CA (occurrence: CA)
  Receive Date: 20180428
  Receipt Date: 20180428
  Transmission Date: 20180711
  Serious: Yes (Other)
  Sender: FDA-Public Use
  Company Number: CA-ROCHE-2034080

PATIENT
  Age: 43 Year
  Sex: Female

DRUGS (17)
  1. BETAHISTAMINE [Concomitant]
  2. TOPIRAMATE. [Concomitant]
     Active Substance: TOPIRAMATE
  3. HYDROMORPH [Concomitant]
     Active Substance: HYDROMORPHONE
  4. AZATHIOPRINE. [Concomitant]
     Active Substance: AZATHIOPRINE
  5. FOLIC ACID. [Concomitant]
     Active Substance: FOLIC ACID
  6. BACLOFEN. [Concomitant]
     Active Substance: BACLOFEN
  7. PREDNISONE. [Concomitant]
     Active Substance: PREDNISONE
  8. ACTEMRA [Suspect]
     Active Substance: TOCILIZUMAB
     Route: 042
     Dates: start: 20171220
  9. PANTOPRAZOLE [Concomitant]
     Active Substance: PANTOPRAZOLE
  10. GLUCOSAMINE SULPHATE [Concomitant]
     Active Substance: GLUCOSAMINE
  11. TRAMADOL/ACETAMINOPHEN [Concomitant]
     Active Substance: ACETAMINOPHEN\TRAMADOL
  12. REMICADE [Concomitant]
     Active Substance: INFLIXIMAB
     Dosage: LAST DOSE OF REMICADE ONSET 7/SEP/2017
     Route: 065
  13. ACTEMRA [Suspect]
     Active Substance: TOCILIZUMAB
     Indication: POLYCHONDRITIS
     Route: 042
     Dates: start: 20171026
  14. PROCHLORAZINE [Concomitant]
  15. TRIQUILAR [Concomitant]
     Active Substance: DROSPIRENONE\ETHINYL ESTRADIOL
  16. BISOPROLOL [Concomitant]
     Active Substance: BISOPROLOL
     Route: 065
  17. MELOXICAM. [Concomitant]
     Active Substance: MELOXICAM

REACTIONS (15)
  - Blood bilirubin increased [Not Recovered/Not Resolved]
  - Pancreatitis [Unknown]
  - Scratch [Recovered/Resolved]
  - Chromaturia [Unknown]
  - Gilbert^s syndrome [Not Recovered/Not Resolved]
  - Hepatic enzyme increased [Not Recovered/Not Resolved]
  - Liver injury [Unknown]
  - Poor venous access [Unknown]
  - Pruritus [Not Recovered/Not Resolved]
  - Traumatic haemorrhage [Recovering/Resolving]
  - Rash [Not Recovered/Not Resolved]
  - Faeces pale [Unknown]
  - Jaundice [Not Recovered/Not Resolved]
  - Infusion related reaction [Unknown]
  - Weight decreased [Unknown]

NARRATIVE: CASE EVENT DATE: 20171129
